FAERS Safety Report 17534310 (Version 3)
Quarter: 2023Q1

REPORT INFORMATION
  Report Type: Spontaneous
  Country: US (occurrence: None)
  Receive Date: 20200312
  Receipt Date: 20230105
  Transmission Date: 20230417
  Serious: Yes (Other)
  Sender: FDA-Public Use
  Company Number: 2020SE34865

PATIENT
  Age: 22814 Day
  Sex: Female
  Weight: 83.9 kg

DRUGS (54)
  1. NEXIUM [Suspect]
     Active Substance: ESOMEPRAZOLE MAGNESIUM
     Indication: Gastrooesophageal reflux disease
     Route: 048
     Dates: start: 2000, end: 2017
  2. NEXIUM [Suspect]
     Active Substance: ESOMEPRAZOLE MAGNESIUM
     Indication: Gastrooesophageal reflux disease
     Route: 048
     Dates: start: 1999, end: 2002
  3. NEXIUM [Suspect]
     Active Substance: ESOMEPRAZOLE MAGNESIUM
     Indication: Gastrooesophageal reflux disease
     Route: 048
     Dates: start: 20071010
  4. NEXIUM [Suspect]
     Active Substance: ESOMEPRAZOLE MAGNESIUM
     Indication: Gastrooesophageal reflux disease
     Route: 048
     Dates: start: 20090703
  5. NEXIUM [Suspect]
     Active Substance: ESOMEPRAZOLE MAGNESIUM
     Indication: Gastrooesophageal reflux disease
     Route: 048
     Dates: start: 20050827
  6. PRILOSEC [Suspect]
     Active Substance: OMEPRAZOLE MAGNESIUM
     Indication: Gastrooesophageal reflux disease
     Route: 048
     Dates: start: 2000, end: 2017
  7. PRILOSEC [Suspect]
     Active Substance: OMEPRAZOLE MAGNESIUM
     Indication: Gastrooesophageal reflux disease
     Dosage: GENERIC
     Route: 065
     Dates: start: 2000, end: 2017
  8. PRILOSEC [Suspect]
     Active Substance: OMEPRAZOLE MAGNESIUM
     Indication: Gastrooesophageal reflux disease
     Dosage: GENERIC
     Route: 065
     Dates: start: 2007, end: 2020
  9. PRILOSEC [Suspect]
     Active Substance: OMEPRAZOLE MAGNESIUM
     Indication: Gastrooesophageal reflux disease
     Dosage: GENERIC
     Route: 065
     Dates: start: 20121215
  10. PRILOSEC [Suspect]
     Active Substance: OMEPRAZOLE MAGNESIUM
     Indication: Gastrooesophageal reflux disease
     Route: 048
     Dates: start: 20020530
  11. PRILOSEC [Suspect]
     Active Substance: OMEPRAZOLE MAGNESIUM
     Indication: Gastrooesophageal reflux disease
     Dosage: GENERIC
     Route: 065
     Dates: start: 20150217
  12. PRILOSEC [Suspect]
     Active Substance: OMEPRAZOLE MAGNESIUM
     Indication: Gastrooesophageal reflux disease
     Route: 048
  13. PREVACID [Suspect]
     Active Substance: LANSOPRAZOLE
     Indication: Gastrooesophageal reflux disease
     Route: 065
     Dates: start: 2000, end: 2017
  14. PREVACID [Suspect]
     Active Substance: LANSOPRAZOLE
     Indication: Gastrooesophageal reflux disease
     Route: 065
     Dates: start: 2004, end: 2007
  15. PREVACID [Suspect]
     Active Substance: LANSOPRAZOLE
     Indication: Gastrooesophageal reflux disease
     Dosage: 15.0MG UNKNOWN
     Route: 065
     Dates: start: 20030113
  16. TYLENOL [Concomitant]
     Active Substance: ACETAMINOPHEN
     Indication: Pain
     Dates: start: 1999, end: 2020
  17. TUMS [Concomitant]
     Active Substance: CALCIUM CARBONATE
     Dates: start: 1980
  18. ROLAIDS [Concomitant]
     Active Substance: CALCIUM CARBONATE\MAGNESIUM HYDROXIDE
     Dates: start: 1980
  19. FUROSEMIDE [Concomitant]
     Active Substance: FUROSEMIDE
     Dates: start: 20121126
  20. TRAMADOL [Concomitant]
     Active Substance: TRAMADOL
     Dates: start: 20121128
  21. HYDROCODONE [Concomitant]
     Active Substance: HYDROCODONE
     Dates: start: 20121126
  22. GABAPENTIN [Concomitant]
     Active Substance: GABAPENTIN
     Dates: start: 20121215
  23. DIGOXIN [Concomitant]
     Active Substance: DIGOXIN
     Dates: start: 20121215
  24. LORATADINE [Concomitant]
     Active Substance: LORATADINE
     Dates: start: 20121215
  25. PRAMIPEXOLE [Concomitant]
     Active Substance: PRAMIPEXOLE
     Dates: start: 20121215
  26. MELOXICAM [Concomitant]
     Active Substance: MELOXICAM
     Dates: start: 20130107
  27. ZOLPIDEM [Concomitant]
     Active Substance: ZOLPIDEM TARTRATE
     Dates: start: 20130121
  28. METRONIDAZOLE [Concomitant]
     Active Substance: METRONIDAZOLE
     Dates: start: 20131024
  29. NEOMYCIN [Concomitant]
     Active Substance: NEOMYCIN
     Dates: start: 20140221
  30. DOXYCYCLINE [Concomitant]
     Active Substance: DOXYCYCLINE
     Dates: start: 20140906
  31. CLINDAMYCIN [Concomitant]
     Active Substance: CLINDAMYCIN
     Dates: start: 20140922
  32. AMITIZA [Concomitant]
     Active Substance: LUBIPROSTONE
     Dates: start: 20190411
  33. TOPROL XL [Concomitant]
     Active Substance: METOPROLOL SUCCINATE
     Dates: start: 20020225
  34. ZYRTEC [Concomitant]
     Active Substance: CETIRIZINE HYDROCHLORIDE
     Dates: start: 20020530
  35. VITAMIN D [Concomitant]
     Active Substance: VITAMIN D NOS
  36. LORAZEPAM [Concomitant]
     Active Substance: LORAZEPAM
  37. COLACE [Concomitant]
     Active Substance: DOCUSATE SODIUM
  38. KLOR-CON [Concomitant]
     Active Substance: POTASSIUM CHLORIDE
  39. MIRAPEX [Concomitant]
     Active Substance: PRAMIPEXOLE DIHYDROCHLORIDE
  40. TRIAMCINOLON [Concomitant]
     Dates: start: 20161224
  41. TORSEMIDE [Concomitant]
     Active Substance: TORSEMIDE
     Dates: start: 20170904
  42. CELEBREX [Concomitant]
     Active Substance: CELECOXIB
  43. LISINOPRIL [Concomitant]
     Active Substance: LISINOPRIL
  44. PHENERGAN [Concomitant]
     Active Substance: PROMETHAZINE HYDROCHLORIDE
  45. LEVOFLOXACIN [Concomitant]
     Active Substance: LEVOFLOXACIN
  46. CALCIUM [Concomitant]
     Active Substance: CALCIUM
  47. LEUCOVORIN [Concomitant]
     Active Substance: LEUCOVORIN
  48. MINERALS\VITAMINS [Concomitant]
     Active Substance: MINERALS\VITAMINS
  49. MIRALAX [Concomitant]
     Active Substance: POLYETHYLENE GLYCOL 3350
  50. ROPINIROLE [Concomitant]
     Active Substance: ROPINIROLE
  51. OXYBUTYNIN [Concomitant]
     Active Substance: OXYBUTYNIN
     Dates: start: 1980
  52. ATIVAN [Concomitant]
     Active Substance: LORAZEPAM
     Dates: start: 1980
  53. ETODOLAC [Concomitant]
     Active Substance: ETODOLAC
     Dates: start: 1980
  54. VALSARTAN [Concomitant]
     Active Substance: VALSARTAN
     Dates: start: 1980

REACTIONS (3)
  - Acute kidney injury [Not Recovered/Not Resolved]
  - Chronic kidney disease [Not Recovered/Not Resolved]
  - Renal failure [Unknown]

NARRATIVE: CASE EVENT DATE: 20071010
